FAERS Safety Report 23235645 (Version 2)
Quarter: 2023Q4

REPORT INFORMATION
  Report Type: Spontaneous
  Country: US (occurrence: US)
  Receive Date: 20231128
  Receipt Date: 20231219
  Transmission Date: 20240110
  Serious: Yes (Hospitalization)
  Sender: FDA-Public Use
  Company Number: US-PFIZER INC-PV202300193332

PATIENT
  Age: 74 Year
  Sex: Male
  Weight: 85.261 kg

DRUGS (2)
  1. TIKOSYN [Interacting]
     Active Substance: DOFETILIDE
     Indication: Arterial fibrosis
     Dosage: UNK
     Dates: start: 20231018, end: 20231101
  2. ENTRESTO [Interacting]
     Active Substance: SACUBITRIL\VALSARTAN
     Dosage: UNK

REACTIONS (2)
  - Dizziness [Not Recovered/Not Resolved]
  - Drug interaction [Unknown]
